FAERS Safety Report 22013512 (Version 1)
Quarter: 2023Q1

REPORT INFORMATION
  Report Type: Spontaneous
  Country: US (occurrence: US)
  Receive Date: 20230220
  Receipt Date: 20230220
  Transmission Date: 20230417
  Serious: Yes (Other)
  Sender: FDA-Public Use
  Company Number: US-MALLINCKRODT-T202301083

PATIENT
  Sex: Female
  Weight: 3 kg

DRUGS (5)
  1. INOMAX [Suspect]
     Active Substance: NITRIC OXIDE
     Indication: Newborn persistent pulmonary hypertension
     Dosage: UNK WEANED OFF (INHALATION)
     Route: 055
  2. INOMAX [Suspect]
     Active Substance: NITRIC OXIDE
     Dosage: UNK RESUMED, (INHALATION)
     Route: 055
  3. MILRINONE [Concomitant]
     Active Substance: MILRINONE
     Indication: Product used for unknown indication
     Dosage: UNK
     Route: 065
  4. DOPAMINE [Concomitant]
     Active Substance: DOPAMINE HYDROCHLORIDE
     Indication: Product used for unknown indication
     Dosage: UNK
     Route: 065
  5. IMMUNOGLOBULIN [Concomitant]
     Indication: Product used for unknown indication
     Dosage: ONE DOSE
     Route: 065

REACTIONS (14)
  - Acute kidney injury [Unknown]
  - Hypoglycaemia neonatal [Unknown]
  - Thrombocytopenia neonatal [Unknown]
  - Seizure [Recovered/Resolved]
  - Hydrocephalus [Unknown]
  - CSF shunt operation [Unknown]
  - Acute respiratory distress syndrome [Recovering/Resolving]
  - Respiratory failure [Recovering/Resolving]
  - Pneumonia [Unknown]
  - COVID-19 [Recovered/Resolved]
  - Intraventricular haemorrhage neonatal [Unknown]
  - Sepsis neonatal [Unknown]
  - Coagulopathy [Recovered/Resolved]
  - Hepatic function abnormal [Recovering/Resolving]
